FAERS Safety Report 5726878-7 (Version None)
Quarter: 2008Q2

REPORT INFORMATION
  Report Type: 
  Country: None (occurrence: None)
  Receive Date: 20080502
  Receipt Date: 20080424
  Transmission Date: 20081010
  Serious: Yes (Other)
  Sender: FDA-Public Use
  Company Number: NO-PFIZER INC-2008036336

PATIENT
  Sex: Female

DRUGS (13)
  1. CELEBRA [Suspect]
     Indication: RHEUMATOID ARTHRITIS
     Dosage: TEXT:200MG
     Route: 048
     Dates: start: 20020401, end: 20050801
  2. VIOXX [Suspect]
     Indication: RHEUMATOID ARTHRITIS
     Route: 048
     Dates: start: 20010801, end: 20020401
  3. SELEXID [Concomitant]
     Route: 048
  4. SALAZOPYRIN [Concomitant]
     Route: 048
  5. RESCUVOLIN [Concomitant]
     Route: 048
  6. METHOTREXATE [Concomitant]
     Route: 048
  7. PREDNISOLONE [Concomitant]
     Route: 048
  8. PLAQUENIL [Concomitant]
     Route: 048
  9. HUMIRA [Concomitant]
  10. FUROSEMIDE [Concomitant]
     Route: 048
  11. ENALAPRIL [Concomitant]
     Route: 048
  12. PARALGIN FORTE [Concomitant]
     Route: 048
  13. ZANTAC [Concomitant]
     Route: 048

REACTIONS (6)
  - AORTIC VALVE SCLEROSIS [None]
  - CEREBRAL INFARCTION [None]
  - DYSPNOEA [None]
  - HYPERTENSION [None]
  - INTRACRANIAL ANEURYSM [None]
  - RADIUS FRACTURE [None]
